FAERS Safety Report 5751572-6 (Version None)
Quarter: 2008Q2

REPORT INFORMATION
  Report Type: 
  Country: None (occurrence: None)
  Receive Date: 20080528
  Receipt Date: 20080519
  Transmission Date: 20081010
  Serious: Yes (Hospitalization, Other)
  Sender: FDA-Public Use
  Company Number: PHBS2008BR02728

PATIENT
  Age: 81 Year
  Sex: Male
  Weight: 61 kg

DRUGS (8)
  1. EXELON [Suspect]
     Indication: CEREBRAL ISCHAEMIA
     Dosage: 2 DF, BID
     Route: 048
  2. EXELON [Suspect]
     Dosage: INCREASED TO 1 DF, TID
     Route: 048
  3. EXELON [Suspect]
     Dosage: INCREASED TO 2 DF, BID
     Route: 048
  4. GLUCOVANCE [Concomitant]
     Indication: DIABETES MELLITUS
     Dosage: 1 DF / DAILY
     Route: 048
  5. FENERGAN [Concomitant]
     Indication: SLEEP DISORDER
     Dosage: 1 DF / DAILY
     Route: 048
  6. AAS [Concomitant]
     Indication: ANTICOAGULANT THERAPY
     Dosage: 1 DF / DAILY
     Route: 048
  7. SIMVASTATIN [Concomitant]
     Dosage: 1 DF / DAILY
     Route: 048
  8. PAROXETINE HCL [Concomitant]
     Indication: DEPRESSION
     Dosage: 1 DF / DAILY
     Route: 048

REACTIONS (8)
  - CHOKING [None]
  - COLD SWEAT [None]
  - COUGH [None]
  - DISORIENTATION [None]
  - HYPOAESTHESIA [None]
  - PYREXIA [None]
  - RESPIRATORY TRACT INFECTION [None]
  - URINARY TRACT INFECTION [None]
